FAERS Safety Report 4643439-1 (Version None)
Quarter: 2005Q2

REPORT INFORMATION
  Report Type: 
  Country: None (occurrence: None)
  Receive Date: 20050420
  Receipt Date: 20050420
  Transmission Date: 20051028
  Serious: Yes (Death)
  Sender: FDA-Public Use
  Company Number: None

PATIENT
  Sex: Male
  Weight: 72 kg

DRUGS (11)
  1. FLUDARABINE [Suspect]
     Indication: HAEMATOPOIETIC STEM CELL MOBILISATION
     Dosage: 69 MG  IV  QD
     Route: 042
     Dates: start: 20040505, end: 20040509
  2. FLUDARABINE [Suspect]
     Indication: STEM CELL TRANSPLANT
     Dosage: 69 MG  IV  QD
     Route: 042
     Dates: start: 20040505, end: 20040509
  3. MELPAHLAN [Suspect]
     Dosage: 320MG IV
     Route: 042
     Dates: start: 20040510
  4. CAMPATH [Suspect]
     Dosage: 20 MG IV Q
     Route: 042
     Dates: start: 20040505, end: 20040509
  5. DIFLUCAN [Concomitant]
  6. ACYCLOVIR [Concomitant]
  7. PROGRAF [Concomitant]
  8. NORVASC [Concomitant]
  9. HYDROCHLOROTHIAZIDE [Concomitant]
  10. INSULIN [Concomitant]
  11. DAPSONE [Concomitant]

REACTIONS (3)
  - FUNGAEMIA [None]
  - PNEUMONIA [None]
  - PULMONARY EMBOLISM [None]
